APPROVED DRUG PRODUCT: VORANIGO
Active Ingredient: VORASIDENIB
Strength: 40MG
Dosage Form/Route: TABLET;ORAL
Application: N218784 | Product #002
Applicant: SERVIER PHARMACEUTICALS LLC
Approved: Aug 6, 2024 | RLD: Yes | RS: Yes | Type: RX

PATENTS:
Patent 11844758 | Expires: Dec 4, 2035
Patent 11345677 | Expires: Jan 16, 2039
Patent 12433895 | Expires: Jul 11, 2034
Patent 9579324 | Expires: Jul 11, 2034
Patent 10172864 | Expires: Jul 11, 2034

EXCLUSIVITY:
Code: NCE | Date: Aug 6, 2029
Code: ODE-491 | Date: Aug 6, 2031